FAERS Safety Report 13054357 (Version 2)
Quarter: 2016Q4

REPORT INFORMATION
  Report Type: Report from Study
  Country: RU (occurrence: RU)
  Receive Date: 20161222
  Receipt Date: 20161230
  Transmission Date: 20170207
  Serious: Yes (Hospitalization)
  Sender: FDA-Public Use
  Company Number: RU-TEVA-717471ISR

PATIENT
  Age: 17 Year
  Sex: Female
  Weight: 54 kg

DRUGS (10)
  1. DOXORUBICIN [Suspect]
     Active Substance: DOXORUBICIN
     Route: 065
  2. ETOPOSID [Suspect]
     Active Substance: ETOPOSIDE
     Route: 065
  3. MESNA SODIUM 2 MERCAPTOETHANE SULFONATE [Suspect]
     Active Substance: MESNA
     Indication: PROPHYLAXIS
     Dosage: DOSAGES PER LOCAL STANDARD OF CARE
     Route: 065
  4. SULCEF [Concomitant]
     Active Substance: CEFOPERAZONE\SULBACTAM
     Indication: PROPHYLAXIS
     Dosage: 4 GRAM DAILY;
     Route: 042
     Dates: start: 20160409, end: 20160419
  5. MYCONYL [Concomitant]
     Indication: PROPHYLAXIS
     Dosage: 100 ML DAILY;
     Route: 042
     Dates: start: 20160409, end: 20160419
  6. VANCOMYCIN [Concomitant]
     Active Substance: VANCOMYCIN
     Indication: PROPHYLAXIS
     Dosage: 2160 MILLIGRAM DAILY;
     Route: 042
     Dates: start: 20160412, end: 20160419
  7. LIPEGFILGRASTIM [Suspect]
     Active Substance: LIPEGFILGRASTIM
     Indication: NEUTROPENIA
     Dosage: 6 MILLIGRAM DAILY;
     Route: 058
     Dates: start: 20151221, end: 20160229
  8. IFOSFAMIDE. [Suspect]
     Active Substance: IFOSFAMIDE
     Dosage: G/M2; ON CTX-DAY1, CTX-DAY2, CTX-DAY3
     Route: 065
  9. VINCRISTINE [Suspect]
     Active Substance: VINCRISTINE
     Dosage: MAXIMUM DOSE PER LOCAL STANDARDS; ON CTX-DAY 1
     Route: 065
  10. TRANEKSAM [Concomitant]
     Indication: PROPHYLAXIS
     Dosage: 750 MILLIGRAM DAILY;
     Route: 042
     Dates: start: 20160410, end: 20160415

REACTIONS (1)
  - Pancytopenia [Recovered/Resolved]

NARRATIVE: CASE EVENT DATE: 20160409
